FAERS Safety Report 5520935-6 (Version None)
Quarter: 2007Q4

REPORT INFORMATION
  Report Type: 
  Country: None (occurrence: None)
  Receive Date: 20071119
  Receipt Date: 20071112
  Transmission Date: 20080405
  Serious: Yes (Life-Threatening, Hospitalization)
  Sender: FDA-Public Use
  Company Number: JP-BRISTOL-MYERS SQUIBB COMPANY-13966064

PATIENT
  Age: 59 Year
  Sex: Female

DRUGS (5)
  1. BARACLUDE [Suspect]
     Indication: HEPATIC CIRRHOSIS
     Route: 048
     Dates: start: 20061115, end: 20071002
  2. TAKEPRON [Concomitant]
     Route: 048
  3. LIVACT [Concomitant]
     Route: 048
  4. GLAKAY [Concomitant]
     Route: 048
  5. URSO 250 [Concomitant]
     Route: 048

REACTIONS (1)
  - PANCREATITIS ACUTE [None]
